FAERS Safety Report 14907482 (Version 2)
Quarter: 2018Q2

REPORT INFORMATION
  Report Type: Spontaneous
  Country: DE (occurrence: DE)
  Receive Date: 20180517
  Receipt Date: 20180521
  Transmission Date: 20180711
  Serious: Yes (Hospitalization, Other)
  Sender: FDA-Public Use
  Company Number: DE-009507513-1805DEU006343

PATIENT
  Age: 54 Year
  Sex: Female

DRUGS (15)
  1. OLANZAPINE. [Suspect]
     Active Substance: OLANZAPINE
     Indication: SCHIZOAFFECTIVE DISORDER
     Route: 065
  2. VALPROATE SODIUM. [Interacting]
     Active Substance: VALPROATE SODIUM
     Indication: SCHIZOAFFECTIVE DISORDER
     Dosage: 1200 MG, UNK
     Route: 065
     Dates: start: 2014
  3. PREGABALIN. [Concomitant]
     Active Substance: PREGABALIN
     Indication: PRODUCT USED FOR UNKNOWN INDICATION
     Dosage: 200 MG, UNK
     Route: 065
  4. PREGABALIN. [Concomitant]
     Active Substance: PREGABALIN
     Indication: SCHIZOAFFECTIVE DISORDER
     Dosage: 300 MG, UNK
     Route: 065
  5. ZOLPIDEM [Concomitant]
     Active Substance: ZOLPIDEM\ZOLPIDEM TARTRATE
     Indication: SCHIZOAFFECTIVE DISORDER
     Dosage: UNK
     Route: 065
  6. VALPROATE SODIUM. [Interacting]
     Active Substance: VALPROATE SODIUM
     Dosage: 1050 MG, UNK
     Route: 065
     Dates: start: 2013
  7. QUETIAPINE FUMARATE. [Interacting]
     Active Substance: QUETIAPINE FUMARATE
     Dosage: 600 UNK, UNK
     Route: 065
  8. VALPROATE SODIUM. [Interacting]
     Active Substance: VALPROATE SODIUM
     Dosage: UNK
     Route: 065
     Dates: start: 2012
  9. MIRTAZAPINE. [Suspect]
     Active Substance: MIRTAZAPINE
     Indication: SCHIZOAFFECTIVE DISORDER
     Route: 065
  10. QUETIAPINE FUMARATE. [Interacting]
     Active Substance: QUETIAPINE FUMARATE
     Indication: SCHIZOAFFECTIVE DISORDER
     Dosage: 400 MG, UNK
     Route: 065
  11. SERTRALINE HYDROCHLORIDE. [Suspect]
     Active Substance: SERTRALINE HYDROCHLORIDE
     Dosage: 25 MG, UNK
     Route: 065
  12. ARIPIPRAZOLE. [Concomitant]
     Active Substance: ARIPIPRAZOLE
     Indication: SCHIZOAFFECTIVE DISORDER
     Dosage: 5 MG, UNK
     Route: 065
  13. TRAZODONE HYDROCHLORIDE. [Concomitant]
     Active Substance: TRAZODONE HYDROCHLORIDE
     Indication: SCHIZOAFFECTIVE DISORDER
     Dosage: UNK
     Route: 065
  14. SERTRALINE HYDROCHLORIDE. [Suspect]
     Active Substance: SERTRALINE HYDROCHLORIDE
     Indication: SCHIZOAFFECTIVE DISORDER
     Dosage: 50 MG, UNK
     Route: 065
  15. PREGABALIN. [Concomitant]
     Active Substance: PREGABALIN
     Dosage: 300 MG, UNK
     Route: 065

REACTIONS (22)
  - Visual acuity reduced [Recovering/Resolving]
  - Dizziness [Recovered/Resolved]
  - Extrapyramidal disorder [Recovered/Resolved]
  - Tremor [Recovered/Resolved]
  - Memory impairment [Recovering/Resolving]
  - Drug ineffective [Unknown]
  - Disturbance in attention [Recovered/Resolved]
  - Psychotic disorder [Unknown]
  - Parkinsonism [Unknown]
  - Asthenia [Recovered/Resolved]
  - Cognitive disorder [Recovering/Resolving]
  - Muscle rigidity [Recovered/Resolved]
  - Gait disturbance [Recovered/Resolved]
  - Memory impairment [Recovered/Resolved]
  - Parkinsonism [Recovered/Resolved]
  - Therapeutic response decreased [Unknown]
  - Balance disorder [Recovering/Resolving]
  - Disorientation [Recovered/Resolved]
  - Drug interaction [Unknown]
  - Depression [Unknown]
  - Off label use [Unknown]
  - Extrapyramidal disorder [Unknown]
